FAERS Safety Report 4547957-6 (Version None)
Quarter: 2005Q1

REPORT INFORMATION
  Report Type: 
  Country: None (occurrence: None)
  Receive Date: 20050110
  Receipt Date: 20040819
  Transmission Date: 20050727
  Serious: Yes (Hospitalization, Other)
  Sender: FDA-Public Use
  Company Number: AT-JNJFOC-20040605068

PATIENT
  Age: 65 Year
  Sex: Female

DRUGS (10)
  1. CAELYX [Suspect]
     Dosage: 40 MG/M2 X 1 CYCLE
     Route: 042
  2. RADIATION THERAPY [Suspect]
  3. AMITRIPTYLINE [Concomitant]
     Indication: PAIN
     Dosage: 100 MG XL
     Route: 049
  4. TRAMADOL HCL [Concomitant]
     Indication: PAIN
     Route: 049
  5. PANTOPRAZOLE SODIUM [Concomitant]
     Indication: GASTROINTESTINAL DISORDER THERAPY
     Route: 049
  6. PREDNISOLONE [Concomitant]
     Route: 049
  7. HALOPERIDOL [Concomitant]
     Dosage: 2 MG/ML
     Route: 049
  8. FENTANYL [Concomitant]
     Indication: PAIN
     Route: 062
  9. IPRATROPIUM BROMIDE [Concomitant]
     Route: 055
  10. LACTULOSE [Concomitant]
     Dosage: 50% ORAL

REACTIONS (5)
  - LYMPHADENOPATHY [None]
  - PNEUMONIA [None]
  - PROTHROMBIN TIME SHORTENED [None]
  - SEPSIS [None]
  - VOMITING [None]
